FAERS Safety Report 13247879 (Version 2)
Quarter: 2017Q1

REPORT INFORMATION
  Report Type: Spontaneous
  Country: US (occurrence: US)
  Receive Date: 20170217
  Receipt Date: 20170309
  Transmission Date: 20170428
  Serious: No
  Sender: FDA-Public Use
  Company Number: US-TAIHO ONCOLOGY INC-EU-2017-00270

PATIENT
  Sex: Female

DRUGS (13)
  1. LONSURF [Suspect]
     Active Substance: TIPIRACIL HYDROCHLORIDE\TRIFLURIDINE
     Indication: COLORECTAL CANCER METASTATIC
     Dosage: CYCLE 5
     Route: 048
     Dates: start: 20161226, end: 20170106
  2. MICOTIN [Concomitant]
     Route: 061
  3. PERCOCET [Concomitant]
     Active Substance: ACETAMINOPHEN\OXYCODONE HYDROCHLORIDE
     Dosage: 5-325 MG
  4. ZOFRAN [Concomitant]
     Active Substance: ONDANSETRON HYDROCHLORIDE
     Indication: VOMITING
  5. ZINC OXIDE/CALAMINE [Concomitant]
     Indication: PRURITUS
  6. LASIX [Concomitant]
     Active Substance: FUROSEMIDE
     Route: 048
  7. SPIRIVA WITH HANDINHALER [Concomitant]
     Dosage: INHALATION CAPSULE
     Route: 048
  8. LIPITOR [Concomitant]
     Active Substance: ATORVASTATIN CALCIUM
     Dosage: NIGHTLY
     Route: 048
  9. LIDODERM [Concomitant]
     Active Substance: LIDOCAINE
     Dosage: REMOVE AND DISCARD WITHIN 12 HOURS OR AS DIRECTED
  10. ZOFRAN [Concomitant]
     Active Substance: ONDANSETRON HYDROCHLORIDE
     Indication: NAUSEA
     Dosage: AS NEEDED
     Route: 048
  11. GLYCOLAX [Concomitant]
     Active Substance: POLYETHYLENE GLYCOL 3350
     Indication: CONSTIPATION
     Dosage: AS NEEDED
     Route: 048
  12. SENOKOT [Concomitant]
     Active Substance: SENNOSIDES
     Indication: CONSTIPATION
     Dosage: NIGHTLY AS NEEDED
     Route: 048
  13. PROVENTIL HFA [Concomitant]
     Active Substance: ALBUTEROL SULFATE
     Dosage: 1 PUFF AS NEEDED
     Route: 048

REACTIONS (1)
  - Disease progression [Unknown]
